FAERS Safety Report 10220274 (Version 1)
Quarter: 2014Q2

REPORT INFORMATION
  Report Type: Spontaneous
  Country: BR (occurrence: BR)
  Receive Date: 20140606
  Receipt Date: 20140606
  Transmission Date: 20141212
  Serious: Yes (Other)
  Sender: FDA-Public Use
  Company Number: BR-ROCHE-1410865

PATIENT
  Age: 71 Year
  Sex: Female
  Weight: 47.9 kg

DRUGS (8)
  1. HERCEPTIN [Suspect]
     Indication: BREAST CANCER
     Route: 042
     Dates: start: 201301, end: 201304
  2. HERCEPTIN [Suspect]
     Dosage: ADMINISTRATION OF 209 ML OF TRASTUZUMAB (FIFTH CYCLE)
     Route: 042
     Dates: start: 20131016, end: 20131016
  3. ATENOLOL [Concomitant]
     Indication: HYPERTENSION
     Route: 048
  4. ENALAPRIL [Concomitant]
     Indication: HYPERTENSION
     Route: 048
  5. HYDROCHLOROTHIAZIDE [Concomitant]
     Indication: HYPERTENSION
     Route: 048
  6. DOXORUBICIN [Concomitant]
     Indication: BREAST CANCER
     Route: 065
     Dates: start: 201210, end: 201301
  7. CYCLOPHOSPHAMIDE [Concomitant]
     Indication: BREAST CANCER
     Route: 065
     Dates: start: 201210, end: 201301
  8. DOCETAXEL [Concomitant]
     Indication: BREAST CANCER
     Route: 065
     Dates: start: 201301, end: 201304

REACTIONS (2)
  - Tremor [Recovered/Resolved]
  - Chills [Recovered/Resolved]
